FAERS Safety Report 20845732 (Version 3)
Quarter: 2022Q4

REPORT INFORMATION
  Report Type: Other
  Country: AU (occurrence: AU)
  Receive Date: 20220518
  Receipt Date: 20221219
  Transmission Date: 20230112
  Serious: No
  Sender: FDA-Public Use
  Company Number: AU-TOLMAR, INC.-22AU033611

PATIENT
  Age: 76 Year
  Sex: Male

DRUGS (1)
  1. ELIGARD [Suspect]
     Active Substance: LEUPROLIDE ACETATE
     Indication: Prostate cancer
     Dosage: 22.5 MILLIGRAM, Q 3 MONTH
     Dates: start: 20220317

REACTIONS (6)
  - Depressed mood [Unknown]
  - Injection site mass [Not Recovered/Not Resolved]
  - Prostatic specific antigen abnormal [Unknown]
  - Injection site pain [Not Recovered/Not Resolved]
  - Hot flush [Not Recovered/Not Resolved]
  - Weight loss poor [Unknown]

NARRATIVE: CASE EVENT DATE: 20220317
